FAERS Safety Report 15932360 (Version 4)
Quarter: 2019Q2

REPORT INFORMATION
  Report Type: Spontaneous
  Country: US (occurrence: US)
  Receive Date: 20190207
  Receipt Date: 20190620
  Transmission Date: 20190711
  Serious: Yes (Hospitalization)
  Sender: FDA-Public Use
  Company Number: US-TEVA-2019-US-998038

PATIENT
  Sex: Female

DRUGS (3)
  1. SYNRIBO [Suspect]
     Active Substance: OMACETAXINE MEPESUCCINATE
     Indication: CHRONIC MYELOID LEUKAEMIA
     Dosage: 1 DF: 2MG/0.57ML
     Dates: start: 20190105
  2. ZOFRAN [Concomitant]
     Active Substance: ONDANSETRON HYDROCHLORIDE
  3. SYNRIBO [Suspect]
     Active Substance: OMACETAXINE MEPESUCCINATE
     Dosage: 1 DF: 2MG/0.57ML
     Dates: start: 20190322

REACTIONS (7)
  - Diarrhoea [Unknown]
  - Muscle spasms [Unknown]
  - Product dose omission [Unknown]
  - Gastrooesophageal reflux disease [Unknown]
  - Vomiting [Unknown]
  - Nausea [Unknown]
  - Platelet count decreased [Unknown]
